FAERS Safety Report 20069720 (Version 3)
Quarter: 2021Q4

REPORT INFORMATION
  Report Type: Spontaneous
  Country: US (occurrence: US)
  Receive Date: 20211115
  Receipt Date: 20211206
  Transmission Date: 20220303
  Serious: Yes (Other)
  Sender: FDA-Public Use
  Company Number: US-ORGANON-O2111USA001474

PATIENT
  Sex: Female

DRUGS (1)
  1. NEXPLANON [Suspect]
     Active Substance: ETONOGESTREL
     Indication: Contraception
     Dosage: 1 IMPLANT (68 MG)
     Route: 059

REACTIONS (3)
  - Staphylococcal infection [Recovered/Resolved]
  - Device expulsion [Recovered/Resolved]
  - Impaired healing [Recovered/Resolved]
